FAERS Safety Report 6733062-7 (Version None)
Quarter: 2010Q2

REPORT INFORMATION
  Report Type: 
  Country: None (occurrence: None)
  Receive Date: 20100518
  Receipt Date: 20100507
  Transmission Date: 20101027
  Serious: Yes (Hospitalization)
  Sender: FDA-Public Use
  Company Number: 2007-03416

PATIENT
  Age: 29 Year
  Sex: Male
  Weight: 82 kg

DRUGS (7)
  1. VELCADE [Suspect]
     Indication: T-CELL LYMPHOMA
     Dosage: 3.00 MG, INTRAVENOUS
     Route: 042
     Dates: start: 20070807, end: 20070921
  2. DOXORUBICIN HCL [Suspect]
     Indication: T-CELL LYMPHOMA
     Dosage: 150 MG, INTRAVENOUS
     Route: 042
     Dates: start: 20070807, end: 20070917
  3. CYCLOPHOSPHAMIDE [Suspect]
     Indication: T-CELL LYMPHOMA
     Dosage: 2400 MG, INTRAVENOUS
     Route: 042
     Dates: start: 20070807, end: 20070917
  4. ELDISINE [Suspect]
     Indication: T-CELL LYMPHOMA
     Dosage: 4 MG, INTRAVENOUS
     Route: 042
     Dates: start: 20070807, end: 20070921
  5. BLEOMYCIN SULFATE [Suspect]
     Indication: T-CELL LYMPHOMA
     Dosage: 10 MG, INTRAVENOUS
     Route: 042
     Dates: start: 20070807, end: 20070921
  6. METHOTREXATE [Suspect]
     Indication: T-CELL LYMPHOMA
     Dosage: 15 MG,
     Dates: start: 20070807, end: 20071021
  7. GRANOCYTE 13-34 (LENOGRASTIM) INJECTION [Suspect]
     Indication: T-CELL LYMPHOMA
     Dosage: 340 UG,
     Dates: start: 20070922, end: 20070925

REACTIONS (2)
  - LUNG INFECTION [None]
  - NEUTROPENIA [None]
